FAERS Safety Report 17523912 (Version 3)
Quarter: 2020Q2

REPORT INFORMATION
  Report Type: Report from Study
  Country: DE (occurrence: DE)
  Receive Date: 20200311
  Receipt Date: 20200403
  Transmission Date: 20200713
  Serious: Yes (Hospitalization)
  Sender: FDA-Public Use
  Company Number: DE-ROCHE-2562371

PATIENT
  Age: 32 Year
  Sex: Female
  Weight: 65 kg

DRUGS (10)
  1. VEMURAFENIB. [Suspect]
     Active Substance: VEMURAFENIB
     Indication: MALIGNANT MELANOMA
     Dosage: DATE OF LAST DOSE: 04/MAR/2020
     Route: 048
     Dates: start: 20191104
  2. COBIMETINIB. [Suspect]
     Active Substance: COBIMETINIB
     Indication: MALIGNANT MELANOMA
     Dosage: DATE OF LAST DOSE PRIOR TO SAE/AESI: 04/MAR/2020
     Route: 048
     Dates: start: 20191104
  3. NOVALGIN (METAMIZOLE SODIUM) [Concomitant]
     Active Substance: METAMIZOLE SODIUM
  4. HYDROCORTISON [HYDROCORTISONE] [Concomitant]
     Route: 065
     Dates: start: 20190423
  5. PANTOPRAZOLE [Concomitant]
     Active Substance: PANTOPRAZOLE
     Route: 065
     Dates: start: 20200121
  6. ARCOXIA [Concomitant]
     Active Substance: ETORICOXIB
     Route: 065
     Dates: start: 20200121
  7. BETAGALEN [Concomitant]
     Route: 065
     Dates: start: 20190507
  8. BUPROFEN [Concomitant]
     Active Substance: IBUPROFEN
     Route: 065
     Dates: start: 20191227
  9. EUBIOL [SACCHAROMYCES CEREVISIAE] [Concomitant]
     Route: 065
     Dates: start: 20190416
  10. ATEZOLIZUMAB. [Suspect]
     Active Substance: ATEZOLIZUMAB
     Indication: MALIGNANT MELANOMA
     Dosage: DATE OF LAST DOSE PRIOR TO SAE/AESI: 24/SEP/2019
     Route: 042
     Dates: start: 20190702

REACTIONS (1)
  - Demyelination [Not Recovered/Not Resolved]

NARRATIVE: CASE EVENT DATE: 20200127
